FAERS Safety Report 6801895-4 (Version None)
Quarter: 2010Q2

REPORT INFORMATION
  Report Type: 
  Country: None (occurrence: None)
  Receive Date: 20100629
  Receipt Date: 20100621
  Transmission Date: 20101027
  Serious: Yes (Hospitalization, Other)
  Sender: FDA-Public Use
  Company Number: US-CELGENEUS-163-21880-10040170

PATIENT
  Sex: Male

DRUGS (5)
  1. REVLIMID [Suspect]
     Indication: MULTIPLE MYELOMA
     Route: 048
     Dates: start: 20091201
  2. REVLIMID [Suspect]
     Route: 048
     Dates: start: 20100217, end: 20100511
  3. REVLIMID [Suspect]
     Route: 048
     Dates: start: 20100525
  4. MELPHALAN HYDROCHLORIDE [Concomitant]
     Indication: MULTIPLE MYELOMA
     Route: 048
     Dates: start: 20100201, end: 20100221
  5. PREDNISONE [Concomitant]
     Indication: MULTIPLE MYELOMA
     Route: 048
     Dates: start: 20100217, end: 20100221

REACTIONS (5)
  - BONE MARROW FAILURE [None]
  - BRONCHITIS [None]
  - CONSTIPATION [None]
  - DIARRHOEA [None]
  - FLATULENCE [None]
